FAERS Safety Report 8390437-0 (Version None)
Quarter: 2012Q2

REPORT INFORMATION
  Report Type: 
  Country: None (occurrence: None)
  Receive Date: 20120517
  Receipt Date: 20120508
  Transmission Date: 20120825
  Serious: Yes (Other)
  Sender: FDA-Public Use
  Company Number: B0801736A

PATIENT
  Sex: Male

DRUGS (3)
  1. MELPHALAN HYDROCHLORIDE [Suspect]
     Indication: POEMS SYNDROME
     Dosage: 200 MG/M2/ CYCLIC/
  2. STEM CELL TRANSPLANT [Concomitant]
  3. DEXAMETHASONE [Suspect]
     Indication: POEMS SYNDROME

REACTIONS (3)
  - NEUTROPENIA [None]
  - PLEURAL EFFUSION [None]
  - RENAL FAILURE [None]
